FAERS Safety Report 15050205 (Version 1)
Quarter: 2018Q2

REPORT INFORMATION
  Report Type: Report from Study
  Country: NO (occurrence: NO)
  Receive Date: 20180622
  Receipt Date: 20180622
  Transmission Date: 20180711
  Serious: Yes (Death, Other)
  Sender: FDA-Public Use
  Company Number: NO-B.I. PHARMACEUTICALS,INC./RIDGEFIELD-2018-BI-032164

PATIENT

DRUGS (2)
  1. CATAPRESAN [Suspect]
     Active Substance: CLONIDINE
     Route: 065
  2. CATAPRESAN [Suspect]
     Active Substance: CLONIDINE
     Indication: DELIRIUM
     Dosage: ONE CAPSULE EVERY 3RD HOUR UP TO A MAXIMUM OF 4 DOSES ON DAY 1
     Route: 065

REACTIONS (3)
  - Pulmonary oedema [Unknown]
  - Death [Fatal]
  - Pulmonary hypertension [Unknown]
